FAERS Safety Report 4711322-9 (Version None)
Quarter: 2005Q3

REPORT INFORMATION
  Report Type: 
  Country: None (occurrence: None)
  Receive Date: 20050708
  Receipt Date: 20050628
  Transmission Date: 20060218
  Serious: Yes (Hospitalization, Other)
  Sender: FDA-Public Use
  Company Number: 2001058760US

PATIENT
  Age: 28 Year
  Sex: Female
  Weight: 70.75 kg

DRUGS (7)
  1. SOLU-MEDROL [Suspect]
     Indication: URTICARIA
     Dosage: 500 MG (125 MG, 4 IN 1 D), INTRAVENOUS; SEE IMAGE
     Route: 042
     Dates: start: 20010424, end: 20010426
  2. HYDROXYZINE HCL [Suspect]
     Indication: ILL-DEFINED DISORDER
     Dosage: ORAL
     Route: 048
     Dates: end: 20010101
  3. PREDNISONE TAB [Suspect]
     Indication: URTICARIA
     Dosage: ORAL
     Route: 048
     Dates: start: 20010426, end: 20010101
  4. WELLBUTRIN [Suspect]
     Indication: EX-SMOKER
     Dosage: 300 MG (150 MG, 2 IN 1 D), ORAL
     Route: 048
     Dates: start: 20010419, end: 20010424
  5. ORTHO TRI-CYCLEN [Concomitant]
  6. PROPANOLOL (PROPANOLOL) [Concomitant]
  7. IMITREX [Concomitant]

REACTIONS (4)
  - HEADACHE [None]
  - PRURITUS [None]
  - RASH [None]
  - URTICARIA [None]
